FAERS Safety Report 7880733-5 (Version None)
Quarter: 2011Q4

REPORT INFORMATION
  Report Type: 
  Country: None (occurrence: None)
  Receive Date: 20111101
  Receipt Date: 20111019
  Transmission Date: 20120403
  Serious: Yes (Hospitalization)
  Sender: FDA-Public Use
  Company Number: HU-ELI_LILLY_AND_COMPANY-HU201110005326

PATIENT
  Age: 26 Year
  Sex: Female

DRUGS (4)
  1. OLANZAPINE [Suspect]
     Dosage: 300 MG, UNK
     Route: 030
     Dates: start: 20110929
  2. OLANZAPINE [Suspect]
     Indication: SCHIZOPHRENIA
     Dosage: 10 MG, BID
  3. FLUPHENAZINE HCL [Concomitant]
     Dosage: 50 MG, UNK
  4. OLANZAPINE [Suspect]
     Dosage: 5 MG, QD

REACTIONS (5)
  - HEART RATE INCREASED [None]
  - SALIVARY HYPERSECRETION [None]
  - GALACTORRHOEA [None]
  - ANXIETY [None]
  - TREMOR [None]
